FAERS Safety Report 15530818 (Version 1)
Quarter: 2018Q4

REPORT INFORMATION
  Report Type: Spontaneous
  Country: FR (occurrence: FR)
  Receive Date: 20181018
  Receipt Date: 20181018
  Transmission Date: 20190205
  Serious: Yes (Hospitalization, Other)
  Sender: FDA-Public Use
  Company Number: FR-BRISTOL-MYERS SQUIBB COMPANY-BMS-2018-095973

PATIENT
  Age: 80 Year
  Sex: Male
  Weight: 71 kg

DRUGS (1)
  1. OPDIVO [Suspect]
     Active Substance: NIVOLUMAB
     Indication: METASTATIC RENAL CELL CARCINOMA
     Dosage: 213 MG, UNK
     Route: 042

REACTIONS (2)
  - Hepatitis acute [Recovering/Resolving]
  - Hepatic cirrhosis [Not Recovered/Not Resolved]

NARRATIVE: CASE EVENT DATE: 2018
